FAERS Safety Report 24662224 (Version 2)
Quarter: 2025Q1

REPORT INFORMATION
  Report Type: Report from Study
  Country: US (occurrence: US)
  Receive Date: 20241125
  Receipt Date: 20250102
  Transmission Date: 20250409
  Serious: No
  Sender: SUNOVION
  Company Number: US-SMPA-2024SPA005100AA

PATIENT

DRUGS (3)
  1. ORGOVYX [Suspect]
     Active Substance: RELUGOLIX
     Indication: Prostate cancer
     Dosage: 120 MG, QD
     Route: 048
     Dates: start: 20241017
  2. NUBEQA [Suspect]
     Active Substance: DAROLUTAMIDE
     Indication: Prostate cancer
     Dosage: 300 MG, BID
     Route: 065
     Dates: start: 20241017
  3. NUBEQA [Suspect]
     Active Substance: DAROLUTAMIDE
     Dosage: 600 MG, BID
     Route: 065

REACTIONS (8)
  - Urinary retention [Unknown]
  - Dysuria [Recovered/Resolved]
  - Urinary incontinence [Unknown]
  - Urine abnormality [Not Recovered/Not Resolved]
  - Skin burning sensation [Recovered/Resolved]
  - Pollakiuria [Recovering/Resolving]
  - Chills [Recovered/Resolved]
  - Hot flush [Unknown]
